FAERS Safety Report 24553498 (Version 1)
Quarter: 2024Q4

REPORT INFORMATION
  Report Type: Report from Study
  Country: US (occurrence: US)
  Receive Date: 20241028
  Receipt Date: 20241028
  Transmission Date: 20250114
  Serious: No
  Sender: ROCHE
  Company Number: US-ROCHE-3060558

PATIENT
  Age: 15 Year
  Sex: Male
  Weight: 49.9 kg

DRUGS (3)
  1. NUTROPIN AQ [Suspect]
     Active Substance: SOMATROPIN
     Indication: Growth retardation
     Dosage: ONGOING: YES
     Route: 058
     Dates: start: 202003
  2. NUTROPIN AQ [Suspect]
     Active Substance: SOMATROPIN
     Indication: Hypopituitarism
     Dosage: ONGOING: YES
     Route: 058
     Dates: start: 202009
  3. NUTROPIN AQ [Suspect]
     Active Substance: SOMATROPIN
     Route: 058

REACTIONS (6)
  - Contusion [Unknown]
  - Peripheral swelling [Unknown]
  - Product complaint [Unknown]
  - Pain [Unknown]
  - Drug delivery system malfunction [Unknown]
  - Injection site pain [Recovered/Resolved]

NARRATIVE: CASE EVENT DATE: 20220322
